FAERS Safety Report 17650620 (Version 2)
Quarter: 2020Q2

REPORT INFORMATION
  Report Type: Spontaneous
  Country: PL (occurrence: PL)
  Receive Date: 20200409
  Receipt Date: 20200427
  Transmission Date: 20200713
  Serious: Yes (Life-Threatening, Other)
  Sender: FDA-Public Use
  Company Number: PL-ACCORD-178263

PATIENT
  Age: 45 Year
  Sex: Female

DRUGS (2)
  1. PACLITAXEL/PACLITAXEL LIPOSOME [Suspect]
     Active Substance: PACLITAXEL
     Indication: ENDOMETRIAL ADENOCARCINOMA
     Dosage: CYCLE 4, AT 21-DAY INTERVALS
     Dates: start: 201807, end: 2018
  2. CARBOPLATIN. [Suspect]
     Active Substance: CARBOPLATIN
     Indication: ENDOMETRIAL ADENOCARCINOMA
     Dosage: CYCLE 4, AT 21-DAY INTERVALS
     Dates: start: 201807, end: 2018

REACTIONS (3)
  - Off label use [Unknown]
  - Drug ineffective [Unknown]
  - Deep vein thrombosis [Unknown]

NARRATIVE: CASE EVENT DATE: 2018
